FAERS Safety Report 4916427-5 (Version None)
Quarter: 2006Q1

REPORT INFORMATION
  Report Type: 
  Country: None (occurrence: None)
  Receive Date: 20060214
  Receipt Date: 20060207
  Transmission Date: 20060701
  Serious: Yes (Life-Threatening)
  Sender: FDA-Public Use
  Company Number: 8014902

PATIENT
  Age: 55 Year
  Sex: Female
  Weight: 60 kg

DRUGS (4)
  1. KEPPRA [Suspect]
     Indication: EPILEPSY
     Dosage: 1250 MG PO
     Route: 048
  2. VALPROATE SODIUM [Suspect]
     Indication: EPILEPSY
     Dosage: 2500 MG PO
     Route: 048
     Dates: end: 20060111
  3. QUINIDINE SULFATE [Suspect]
     Indication: MUSCLE SPASMS
     Dosage: 300 MG 1/D PO
     Route: 048
     Dates: end: 20060111
  4. CO-DYDRAMOL [Concomitant]

REACTIONS (2)
  - NEUTROPENIC SEPSIS [None]
  - PLATELET COUNT DECREASED [None]
